FAERS Safety Report 18059079 (Version 1)
Quarter: 2020Q3

REPORT INFORMATION
  Report Type: Spontaneous
  Country: NL (occurrence: NL)
  Receive Date: 20200723
  Receipt Date: 20200723
  Transmission Date: 20201103
  Serious: Yes (Death, Life-Threatening, Hospitalization, Other)
  Sender: FDA-Public Use
  Company Number: NL-TEVA-2020-NL-1803887

PATIENT
  Age: 65 Year
  Sex: Male
  Weight: 74 kg

DRUGS (11)
  1. DEXAMETHASON [Suspect]
     Active Substance: DEXAMETHASONE
     Indication: METASTASES TO CENTRAL NERVOUS SYSTEM
     Dosage: 2 DD 3 MG
     Dates: start: 20190121, end: 20190304
  2. EZETIMIB 10 MG TABLET [Concomitant]
     Dosage: 10 MG?THERAPY START DATE : ASKED BUT UNKNOWN, THERAPY END DATE : ASKED BUT UNKNOWN
  3. AMIODARON 200 MG TABLET [Concomitant]
     Dosage: 200 MG.
  4. ENALAPRIL 5 MG TABLET [Concomitant]
     Active Substance: ENALAPRIL
     Dosage: 0.5 TABLET, 5 MG. THERAPY START DATE : ASKED BUT UNKNOWN, THERAPY END DATE : ASKED BUT UNKNOWN?UNIT
  5. TRIAMCINOLONACETONIDE FNA 1 MG/G CREME [Concomitant]
     Dosage: 1 DD ON THE AFFECTED AREAS. 1 DOSAGE FORMS?THERAPY START DATE : ASKED BUT UNKNOWN, THERAPY END DATE
  6. LEVOTHYROXINE 75 UG TABLET [Concomitant]
     Dosage: 75 UG?THERAPY START DATE : ASKED BUT UNKNOWN, THERAPY END DATE : ASKED BUT UNKNOWN
  7. PANTOPRAZOL 40 MG TABLET [Concomitant]
     Dosage: 40 MG. THERAPY END DATE: ASKED BUT UNKNOWN
     Dates: start: 20190125
  8. PRAVASTATINE 40 MG TABLET [Concomitant]
     Dosage: 40 MG, 60 MG IN THE EVENING.?THERAPY START DATE : ASKED BUT UNKNOWN, THERAPY END DATE : ASKED BUT UN
  9. NITROGLYCERINE 0,4 MG/DO SPRAY SUBLIN [Concomitant]
     Dosage: 1 SPRAY UNDER TONGUE, IF NECESSARY. 1 DOSAGE FORMS?THERAPY START DATE : ASKED BUT UNKNOWN, THERAPY E
  10. FENPROCOUMON 3 MG TABLET [Concomitant]
     Dosage: 3 MG?THERAPY START DATE : ASKED BUT UNKNOWN, THERAPY END DATE : ASKED BUT UNKNOWN
  11. METOPROLOL SUCCINAAT (SELOKEEN) 25 MG TABLET MGA [Concomitant]
     Dosage: 1 DD HALF TABLET, 25 MG. 12 MG?THERAPY START DATE : ASKED BUT UNKNOWN, THERAPY END DATE : ASKED BUT

REACTIONS (5)
  - Coma [Recovered/Resolved]
  - Dehydration [Unknown]
  - Hyperglycaemia [Recovering/Resolving]
  - General physical health deterioration [Unknown]
  - Hallucination [Unknown]

NARRATIVE: CASE EVENT DATE: 20190128
